FAERS Safety Report 5133692-2 (Version None)
Quarter: 2006Q4

REPORT INFORMATION
  Report Type: 
  Country: None (occurrence: None)
  Receive Date: 20061024
  Receipt Date: 20060711
  Transmission Date: 20070319
  Serious: No
  Sender: FDA-Public Use
  Company Number: US-AMGEN-KDL185772

PATIENT
  Sex: Male
  Weight: 94 kg

DRUGS (13)
  1. SENSIPAR [Suspect]
     Indication: HYPERPARATHYROIDISM SECONDARY
     Route: 048
     Dates: start: 20051215, end: 20060608
  2. EPOGEN [Concomitant]
     Indication: RENAL FAILURE CHRONIC
  3. ALLOPURINOL [Concomitant]
  4. FOLIC ACID [Concomitant]
  5. ROCALTROL [Concomitant]
  6. ASPIRIN [Concomitant]
  7. NEPHRO-CAPS [Concomitant]
  8. ZETIA [Concomitant]
  9. CRESTOR [Concomitant]
  10. FERROUS SULFATE TAB [Concomitant]
  11. FOSRENOL [Concomitant]
  12. MICRO-K [Concomitant]
  13. TUMS [Concomitant]

REACTIONS (2)
  - BLOOD PARATHYROID HORMONE INCREASED [None]
  - NIGHTMARE [None]
